FAERS Safety Report 9581806 (Version 1)
Quarter: 2013Q4

REPORT INFORMATION
  Report Type: Spontaneous
  Country: KR (occurrence: KR)
  Receive Date: 20131002
  Receipt Date: 20131002
  Transmission Date: 20140711
  Serious: Yes (Death, Hospitalization, Other)
  Sender: FDA-Public Use
  Company Number: KR-BAYER-2013-117473

PATIENT
  Age: 66 Year
  Sex: Male

DRUGS (2)
  1. ACETYLSALICYLIC ACID({=100 MG) [Suspect]
     Indication: THROMBOSIS PROPHYLAXIS
     Dosage: 100 MG, QD
  2. WARFARIN [Interacting]
     Indication: THROMBOSIS PROPHYLAXIS
     Dosage: 4-5 MG/ DAY

REACTIONS (6)
  - Brain stem haemorrhage [Fatal]
  - Brain herniation [None]
  - Apallic syndrome [None]
  - Respiratory distress [Fatal]
  - Potentiating drug interaction [None]
  - Subdural haematoma [Not Recovered/Not Resolved]
